FAERS Safety Report 8977617 (Version 4)
Quarter: 2014Q3

REPORT INFORMATION
  Report Type: Spontaneous
  Country: US (occurrence: US)
  Receive Date: 20121220
  Receipt Date: 20140902
  Transmission Date: 20150326
  Serious: Yes (Hospitalization)
  Sender: FDA-Public Use
  Company Number: US-GLAXOSMITHKLINE-A1006082A

PATIENT
  Age: 32 Year
  Sex: Female

DRUGS (4)
  1. FLOLAN [Suspect]
     Active Substance: EPOPROSTENOL SODIUM
     Indication: PULMONARY ARTERIAL HYPERTENSION
     Dosage: 123NGKM CONTINUOUS
     Route: 042
     Dates: start: 20080131
  2. REVATIO [Concomitant]
     Active Substance: SILDENAFIL CITRATE
  3. WARFARIN [Concomitant]
     Active Substance: WARFARIN
  4. COUMADIN [Concomitant]
     Active Substance: WARFARIN SODIUM

REACTIONS (7)
  - Pneumonia [Unknown]
  - Headache [Recovered/Resolved]
  - Blood pressure decreased [Unknown]
  - Chest pain [Unknown]
  - Influenza [Unknown]
  - Urinary tract infection [Unknown]
  - Balloon atrial septostomy [Unknown]

NARRATIVE: CASE EVENT DATE: 20121214
